FAERS Safety Report 8516859-2 (Version None)
Quarter: 2012Q3

REPORT INFORMATION
  Report Type: 
  Country: None (occurrence: None)
  Receive Date: 20120706
  Receipt Date: 20120628
  Transmission Date: 20120928
  Serious: Yes (Life-Threatening, Hospitalization, Other)
  Sender: FDA-Public Use
  Company Number: DAV-AE-MTX-12-52

PATIENT
  Age: 55 Year
  Sex: Female

DRUGS (6)
  1. ETOPOSIDE [Concomitant]
  2. DAUNORUBICIN HCL [Concomitant]
  3. METHOTREXATE [Suspect]
     Indication: ACUTE LYMPHOCYTIC LEUKAEMIA
     Dosage: 15 MG WEEKLY
  4. CYTARABINE [Concomitant]
  5. VINCRISTINE [Concomitant]
  6. MERCAPTOPURINE [Concomitant]

REACTIONS (1)
  - PANCYTOPENIA [None]
